FAERS Safety Report 8975175 (Version 2)
Quarter: 2012Q4

REPORT INFORMATION
  Report Type: 
  Country: CA (occurrence: CA)
  Receive Date: 20121219
  Receipt Date: 20121219
  Transmission Date: 20130627
  Serious: Yes (Death, Hospitalization, Other)
  Sender: FDA-Public Use
  Company Number: PHHY2012CA078997

PATIENT
  Age: 63 Year
  Sex: Male

DRUGS (1)
  1. ZOMETA [Suspect]
     Indication: LUNG NEOPLASM MALIGNANT
     Dosage: 4 mg, Every 4 weeks
     Route: 042
     Dates: start: 20120831

REACTIONS (3)
  - Neoplasm malignant [Fatal]
  - Blood calcium increased [Unknown]
  - Influenza like illness [Unknown]
